FAERS Safety Report 7355095-2 (Version None)
Quarter: 2011Q1

REPORT INFORMATION
  Report Type: 
  Country: None (occurrence: None)
  Receive Date: 20110316
  Receipt Date: 20110308
  Transmission Date: 20110831
  Serious: Yes (Other)
  Sender: FDA-Public Use
  Company Number: CA-JNJFOC-20110305236

PATIENT
  Sex: Male

DRUGS (1)
  1. LISTERINE SMART RINSE [Suspect]
     Indication: PRODUCT USED FOR UNKNOWN INDICATION
     Route: 048

REACTIONS (2)
  - ORAL DISCOMFORT [None]
  - APPLICATION SITE BURN [None]
